FAERS Safety Report 14420569 (Version 1)
Quarter: 2018Q1

REPORT INFORMATION
  Report Type: Spontaneous
  Country: US (occurrence: US)
  Receive Date: 20180122
  Receipt Date: 20180122
  Transmission Date: 20180509
  Serious: No
  Sender: FDA-Public Use
  Company Number: US-ROCHE-2000319

PATIENT

DRUGS (5)
  1. RITUXAN [Suspect]
     Active Substance: RITUXIMAB
     Indication: B-CELL LYMPHOMA
     Dosage: PART OF R-CHOP REGIMEN
     Route: 065
  2. CYCLOPHOSPHAMIDE. [Concomitant]
     Active Substance: CYCLOPHOSPHAMIDE
  3. VINCRISTINE [Concomitant]
     Active Substance: VINCRISTINE
  4. PREDNISONE. [Concomitant]
     Active Substance: PREDNISONE
  5. DOXORUBICIN [Concomitant]
     Active Substance: DOXORUBICIN

REACTIONS (1)
  - Hypersensitivity [Unknown]
